FAERS Safety Report 12318691 (Version 2)
Quarter: 2016Q2

REPORT INFORMATION
  Report Type: Spontaneous
  Country: JP (occurrence: JP)
  Receive Date: 20160429
  Receipt Date: 20160519
  Transmission Date: 20160815
  Serious: Yes (Death, Hospitalization, Other)
  Sender: FDA-Public Use
  Company Number: JP-BAYER-2016-002245

PATIENT
  Age: 77 Year
  Sex: Male
  Weight: 44 kg

DRUGS (6)
  1. BAYASPIRIN [Suspect]
     Active Substance: ASPIRIN
     Indication: ISCHAEMIC HEART DISEASE PROPHYLAXIS
     Dosage: DAILY DOSE 100 MG
     Route: 048
     Dates: end: 20151127
  2. PLAVIX [Interacting]
     Active Substance: CLOPIDOGREL BISULFATE
     Indication: ISCHAEMIC HEART DISEASE PROPHYLAXIS
     Dosage: DAILY DOSE 75 MG
     Route: 048
     Dates: end: 20151125
  3. LIVALO [Concomitant]
     Active Substance: PITAVASTATIN CALCIUM
     Indication: DYSLIPIDAEMIA
     Dosage: DAILY DOSE 2 MG
     Route: 048
  4. CELESTAMINE [Concomitant]
     Active Substance: BETAMETHASONE\DEXCHLORPHENIRAMINE MALEATE
     Indication: HYPERSENSITIVITY
     Dosage: DAILY DOSE 2 DF
     Route: 048
  5. MAGLAX [Concomitant]
     Active Substance: MAGNESIUM OXIDE
     Indication: CONSTIPATION
     Dosage: DAILY DOSE 2000 MG
     Route: 048
  6. SENNOSIDE [Concomitant]
     Active Substance: SENNOSIDES
     Indication: CONSTIPATION
     Dosage: DAILY DOSE 12 MG
     Route: 048

REACTIONS (4)
  - Cardiac failure [Fatal]
  - Haemorrhage subcutaneous [Not Recovered/Not Resolved]
  - Pleural effusion [Fatal]
  - Labelled drug-drug interaction medication error [None]

NARRATIVE: CASE EVENT DATE: 20151124
